FAERS Safety Report 19360219 (Version 1)
Quarter: 2021Q2

REPORT INFORMATION
  Report Type: Spontaneous
  Country: US (occurrence: US)
  Receive Date: 20210601
  Receipt Date: 20210601
  Transmission Date: 20210717
  Serious: Yes (Other)
  Sender: FDA-Public Use
  Company Number: US-ACCORD-226402

PATIENT
  Age: 18 Year
  Sex: Female

DRUGS (5)
  1. FOLINIC ACID [Suspect]
     Active Substance: LEUCOVORIN
     Indication: OSTEOSARCOMA METASTATIC
     Dosage: HIGH DOSE (WEEK 4,5,9 AND 10 OF THERAPY)
  2. MANNITOL. [Concomitant]
     Active Substance: MANNITOL
     Indication: BALANCE DISORDER
  3. CISPLATIN. [Suspect]
     Active Substance: CISPLATIN
     Indication: OSTEOSARCOMA METASTATIC
     Dosage: ON WEEKS 1 AND 6 (TWO CONSECUTIVE DAYS)
  4. METHOTREXATE. [Suspect]
     Active Substance: METHOTREXATE
     Indication: OSTEOSARCOMA METASTATIC
  5. DOXORUBICIN [Suspect]
     Active Substance: DOXORUBICIN
     Indication: OSTEOSARCOMA METASTATIC
     Dosage: ON WEEKS 1 AND 6 (TWO CONSECUTIVE DAYS)

REACTIONS (2)
  - Off label use [Unknown]
  - Mucosal inflammation [Unknown]
